APPROVED DRUG PRODUCT: ATROPINE SULFATE
Active Ingredient: ATROPINE SULFATE
Strength: 1%
Dosage Form/Route: SOLUTION/DROPS;OPHTHALMIC
Application: A217791 | Product #001 | TE Code: AT2
Applicant: SOMERSET THERAPEUTICS LLC
Approved: Apr 29, 2024 | RLD: No | RS: No | Type: RX